FAERS Safety Report 5301844-4 (Version None)
Quarter: 2007Q2

REPORT INFORMATION
  Report Type: 
  Country: None (occurrence: None)
  Receive Date: 20070419
  Receipt Date: 20070413
  Transmission Date: 20071010
  Serious: Yes (Death, Hospitalization, Other)
  Sender: FDA-Public Use
  Company Number: US-PURDUE-USA_2007_0026648

PATIENT
  Age: 16 Year
  Sex: Female

DRUGS (1)
  1. OXYCONTIN [Suspect]
     Indication: DRUG ABUSER
     Dosage: 80 MG, SEE TEXT
     Route: 065
     Dates: start: 20070227

REACTIONS (7)
  - CARDIAC ARREST [None]
  - DRUG ABUSER [None]
  - LOSS OF CONSCIOUSNESS [None]
  - LUNG DISORDER [None]
  - MALAISE [None]
  - OVERDOSE [None]
  - UNRESPONSIVE TO STIMULI [None]
